FAERS Safety Report 13170711 (Version 1)
Quarter: 2017Q1

REPORT INFORMATION
  Report Type: Spontaneous
  Country: US (occurrence: US)
  Receive Date: 20170131
  Receipt Date: 20170131
  Transmission Date: 20170428
  Serious: No
  Sender: FDA-Public Use
  Company Number: US-ABBVIE-16K-163-1689570-00

PATIENT
  Age: 52 Year
  Sex: Female

DRUGS (2)
  1. HUMIRA [Suspect]
     Active Substance: ADALIMUMAB
     Indication: FIBROMYALGIA
     Route: 058
     Dates: start: 2003, end: 201603
  2. HUMIRA [Suspect]
     Active Substance: ADALIMUMAB
     Indication: FUNGAL INFECTION

REACTIONS (1)
  - Body tinea [Unknown]

NARRATIVE: CASE EVENT DATE: 20160713
